FAERS Safety Report 21171881 (Version 1)
Quarter: 2022Q3

REPORT INFORMATION
  Report Type: Spontaneous
  Country: US (occurrence: None)
  Receive Date: 20220804
  Receipt Date: 20220804
  Transmission Date: 20221027
  Serious: Yes (Other)
  Sender: FDA-Public Use
  Company Number: US-Hikma Pharmaceuticals USA Inc.-US-H14001-22-01907

PATIENT
  Sex: Female

DRUGS (1)
  1. PREDNISONE [Suspect]
     Active Substance: PREDNISONE
     Indication: Renal failure
     Dosage: UNKNOWN
     Route: 065

REACTIONS (14)
  - Mobility decreased [Unknown]
  - Fatigue [Unknown]
  - Limb discomfort [Unknown]
  - Arthropathy [Unknown]
  - Abdominal discomfort [Unknown]
  - Eye disorder [Unknown]
  - Tooth loss [Unknown]
  - Photosensitivity reaction [Unknown]
  - Renal disorder [Unknown]
  - Visual impairment [Unknown]
  - Gout [Unknown]
  - Chronic kidney disease [Unknown]
  - Insomnia [Unknown]
  - Hypertension [Unknown]
